FAERS Safety Report 21016894 (Version 3)
Quarter: 2022Q4

REPORT INFORMATION
  Report Type: Spontaneous
  Country: US (occurrence: US)
  Receive Date: 20220628
  Receipt Date: 20221130
  Transmission Date: 20230113
  Serious: Yes (Other)
  Sender: FDA-Public Use
  Company Number: US-BRISTOL-MYERS SQUIBB COMPANY-2022-064565

PATIENT
  Age: 78 Year
  Sex: Male
  Weight: 79.38 kg

DRUGS (2)
  1. REVLIMID [Suspect]
     Active Substance: LENALIDOMIDE
     Indication: Plasma cell myeloma
     Dosage: Q OTHER DAY
     Route: 048
  2. VELCADE [Suspect]
     Active Substance: BORTEZOMIB
     Indication: Product used for unknown indication
     Route: 065

REACTIONS (5)
  - Eye disorder [Unknown]
  - Hypersensitivity [Unknown]
  - Off label use [Unknown]
  - Retinal vascular occlusion [Unknown]
  - Blepharitis [Recovered/Resolved]

NARRATIVE: CASE EVENT DATE: 20221030
